FAERS Safety Report 5974760-2 (Version None)
Quarter: 2008Q4

REPORT INFORMATION
  Report Type: 
  Country: None (occurrence: None)
  Receive Date: 20081201
  Receipt Date: 20081126
  Transmission Date: 20090506
  Serious: Yes (Hospitalization)
  Sender: FDA-Public Use
  Company Number: US-PFIZER INC-2008100345

PATIENT
  Sex: Female

DRUGS (6)
  1. SOLU-MEDROL [Suspect]
     Indication: MULTIPLE SCLEROSIS
     Dosage: DAILY DOSE:1000MG
  2. REBIF [Suspect]
     Indication: MULTIPLE SCLEROSIS
     Dosage: DAILY DOSE:44MCG
     Route: 058
     Dates: start: 20070803
  3. ALL OTHER THERAPEUTIC PRODUCTS [Concomitant]
  4. ANTIHYPERTENSIVES [Concomitant]
     Indication: HYPERTENSION
  5. ALL OTHER THERAPEUTIC PRODUCTS [Concomitant]
  6. TYLENOL (CAPLET) [Concomitant]

REACTIONS (5)
  - ATRIAL FIBRILLATION [None]
  - FATIGUE [None]
  - INJECTION SITE REACTION [None]
  - NEURALGIA [None]
  - SINUSITIS [None]
